FAERS Safety Report 9851026 (Version 3)
Quarter: 2014Q1

REPORT INFORMATION
  Report Type: Spontaneous
  Country: DK (occurrence: FR)
  Receive Date: 20140128
  Receipt Date: 20140313
  Transmission Date: 20141002
  Serious: Yes (Life-Threatening)
  Sender: FDA-Public Use
  Company Number: FR-FRI-1000053148

PATIENT
  Age: 47 Year
  Sex: Female

DRUGS (5)
  1. ESCITALOPRAM [Suspect]
     Dosage: OVERDOSE OF 1 INTAKE OF UNKNOWN DOSE
     Route: 048
     Dates: start: 20140110
  2. TERCIAN [Suspect]
     Dosage: OVERDOSE OF 1 INTAKE OF UNKNOWN DOSE
     Dates: start: 20130110
  3. SERESTA [Suspect]
     Dosage: OVERDOSE OF 1 INTAKE OF UNKNOWN DOSE
     Dates: start: 20140110
  4. STILNOX [Suspect]
     Dosage: OVERDOSE OF 1 INTAKE OF UNKNOWN DOSE
     Dates: start: 20140110
  5. ALCOHOL [Suspect]
     Dosage: OVERDOSE OF 2 BOTTLES OF WINE
     Dates: start: 20140110

REACTIONS (3)
  - Coma [Recovered/Resolved]
  - Electrocardiogram QT prolonged [Recovered/Resolved]
  - Intentional overdose [Recovered/Resolved]
